FAERS Safety Report 5276419-6 (Version None)
Quarter: 2007Q1

REPORT INFORMATION
  Report Type: 
  Country: None (occurrence: None)
  Receive Date: 20061213
  Receipt Date: 20030529
  Transmission Date: 20070707
  Serious: Yes (Other)
  Sender: FDA-Public Use
  Company Number: 2003UW11827

PATIENT
  Sex: Female

DRUGS (2)
  1. SEROQUEL [Suspect]
     Dosage: 600 MG HS PO
     Route: 048
  2. SERZONE [Suspect]
     Dosage: 600 MG HS

REACTIONS (3)
  - DIZZINESS [None]
  - MEDICATION ERROR [None]
  - SOMNOLENCE [None]
